FAERS Safety Report 16171967 (Version 1)
Quarter: 2019Q2

REPORT INFORMATION
  Report Type: Spontaneous
  Country: FR (occurrence: FR)
  Receive Date: 20190409
  Receipt Date: 20190409
  Transmission Date: 20190711
  Serious: Yes (Hospitalization, Other)
  Sender: FDA-Public Use
  Company Number: FR-AUROBINDO-AUR-APL-2019-018358

PATIENT

DRUGS (3)
  1. NABUCOX [Suspect]
     Active Substance: NABUMETONE
     Indication: ARTHRALGIA
     Dosage: 1 DOSAGE FORM, DAILY (1-0-0)
     Route: 048
     Dates: start: 20190223
  2. OMEPRAZOLE. [Suspect]
     Active Substance: OMEPRAZOLE
     Indication: PROPHYLAXIS AGAINST GASTROINTESTINAL ULCER
     Dosage: 20 MILLIGRAM, DAILY (1-0-0)
     Route: 048
     Dates: start: 20190223
  3. TRAMADOL. [Suspect]
     Active Substance: TRAMADOL
     Indication: ARTHRALGIA
     Dosage: 200 MILLIGRAM, DAILY (1-0-1)
     Route: 048
     Dates: start: 20190223

REACTIONS (2)
  - Respiratory distress [Not Recovered/Not Resolved]
  - Somnolence [Not Recovered/Not Resolved]

NARRATIVE: CASE EVENT DATE: 20190225
